FAERS Safety Report 26099028 (Version 1)
Quarter: 2025Q4

REPORT INFORMATION
  Report Type: Spontaneous
  Country: EU (occurrence: EU)
  Receive Date: 20251128
  Receipt Date: 20251128
  Transmission Date: 20260117
  Serious: Yes (Hospitalization)
  Sender: AUROBINDO
  Company Number: EU-AFSSAPS-AM2025000767

PATIENT
  Age: 30 Year
  Sex: Female
  Weight: 61 kg

DRUGS (5)
  1. DIAZEPAM [Suspect]
     Active Substance: DIAZEPAM
     Indication: Prophylaxis against alcoholic withdrawal syndrome
     Dosage: 30 MILLIGRAM, ONCE A DAY
  2. HYDROXYZINE HYDROCHLORIDE [Suspect]
     Active Substance: HYDROXYZINE HYDROCHLORIDE
     Indication: Product used for unknown indication
     Dosage: 50 MILLIGRAM, ONCE A DAY
  3. OMEPRAZOLE [Suspect]
     Active Substance: OMEPRAZOLE
     Indication: Gastrooesophageal reflux disease
     Dosage: 40 MILLIGRAM, ONCE A DAY
  4. KETAMINE [Suspect]
     Active Substance: KETAMINE
     Indication: Drug abuse
     Dosage: 3 GRAM ( 1 WEEK)
     Dates: start: 20240701, end: 20250509
  5. INSULIN NOS [Concomitant]
     Active Substance: INSULIN NOS
     Indication: Product used for unknown indication
     Dosage: UNK
     Route: 065

REACTIONS (3)
  - Pre-eclampsia [Recovered/Resolved]
  - Prolonged labour [Recovered/Resolved]
  - Caesarean section [Recovered/Resolved]

NARRATIVE: CASE EVENT DATE: 20250508
